FAERS Safety Report 21550334 (Version 1)
Quarter: 2022Q4

REPORT INFORMATION
  Report Type: Report from Study
  Country: AU (occurrence: AU)
  Receive Date: 20221103
  Receipt Date: 20221103
  Transmission Date: 20230112
  Serious: Yes (Other)
  Sender: FDA-Public Use
  Company Number: AU-JNJFOC-20221061854

PATIENT
  Age: 70 Year
  Sex: Male
  Weight: 70 kg

DRUGS (1)
  1. BORTEZOMIB [Suspect]
     Active Substance: BORTEZOMIB
     Indication: Plasma cell myeloma
     Dosage: UNK
     Route: 065

REACTIONS (1)
  - Plasma cell myeloma [Unknown]

NARRATIVE: CASE EVENT DATE: 20151215
